FAERS Safety Report 19217050 (Version 1)
Quarter: 2021Q2

REPORT INFORMATION
  Report Type: Spontaneous
  Country: US (occurrence: US)
  Receive Date: 20210505
  Receipt Date: 20210505
  Transmission Date: 20210717
  Serious: Yes (Hospitalization, Other)
  Sender: FDA-Public Use
  Company Number: US-ALEMBIC-2021SCAL000216

PATIENT

DRUGS (3)
  1. BUPROPION HYDROCHLORIDE. [Suspect]
     Active Substance: BUPROPION HYDROCHLORIDE
     Indication: PRODUCT USED FOR UNKNOWN INDICATION
     Dosage: UNK
     Route: 065
  2. DILTIAZEM. [Suspect]
     Active Substance: DILTIAZEM
     Indication: PRODUCT USED FOR UNKNOWN INDICATION
     Dosage: UNK
     Route: 065
  3. VENLAFAXINE [Suspect]
     Active Substance: VENLAFAXINE HYDROCHLORIDE
     Indication: PRODUCT USED FOR UNKNOWN INDICATION
     Dosage: UNK
     Route: 065

REACTIONS (11)
  - Mean arterial pressure decreased [Recovered/Resolved]
  - Hypotension [Recovered/Resolved]
  - Toxicity to various agents [Recovered/Resolved]
  - Distributive shock [Recovered/Resolved]
  - Cardiogenic shock [Recovered/Resolved]
  - Cardiac index decreased [Recovered/Resolved]
  - Venous oxygen saturation decreased [Recovered/Resolved]
  - Overdose [Recovered/Resolved]
  - Vascular resistance systemic decreased [Recovered/Resolved]
  - Lactic acidosis [Recovered/Resolved]
  - Multiple organ dysfunction syndrome [Recovering/Resolving]
